FAERS Safety Report 5099174-1 (Version None)
Quarter: 2006Q3

REPORT INFORMATION
  Report Type: 
  Country: None (occurrence: None)
  Receive Date: 20060728
  Receipt Date: 20060329
  Transmission Date: 20061208
  Serious: No
  Sender: FDA-Public Use
  Company Number: COT_0574_2006

PATIENT
  Age: 59 Year
  Sex: Female
  Weight: 68.9467 kg

DRUGS (12)
  1. VENTAVIS [Suspect]
     Indication: PULMONARY HYPERTENSION
     Dosage: 5 MCG 7TO8X/DAY IH
     Route: 055
     Dates: start: 20060228
  2. COENZYME Q10 [Concomitant]
  3. SYNTHROID [Concomitant]
  4. NORVASC [Concomitant]
  5. CELEBREX [Concomitant]
  6. PLAQUENIL [Concomitant]
  7. ACTONEL [Concomitant]
  8. MULTIVITAMIN [Concomitant]
  9. VALTREX [Concomitant]
  10. OS-CAL [Concomitant]
  11. NEXIUM [Concomitant]
  12. TYLENOL [Concomitant]

REACTIONS (4)
  - COUGH [None]
  - DRY THROAT [None]
  - HEADACHE [None]
  - NAUSEA [None]
